FAERS Safety Report 8014465-X (Version None)
Quarter: 2011Q4

REPORT INFORMATION
  Report Type: 
  Country: None (occurrence: None)
  Receive Date: 20111229
  Receipt Date: 20111222
  Transmission Date: 20120403
  Serious: Yes (Hospitalization)
  Sender: FDA-Public Use
  Company Number: PHHO2010US17212

PATIENT
  Sex: Male
  Weight: 93 kg

DRUGS (11)
  1. ENALAPRIL MALEATE [Suspect]
     Indication: CARDIAC FAILURE CHRONIC
     Dosage: CODE NOT BROKEN
     Route: 048
     Dates: end: 20110501
  2. ASPIRIN [Concomitant]
     Indication: CORONARY ARTERY DISEASE
     Dosage: 81 MG, QD
     Dates: start: 20010101
  3. CARVEDILOL [Concomitant]
     Indication: CARDIAC FAILURE CONGESTIVE
     Dosage: 12.5 MG, BID
     Dates: start: 20060101
  4. METOLAZONE [Suspect]
     Indication: CARDIAC FAILURE CONGESTIVE
     Dosage: 5 MG, EVERY 10 DAYS
     Dates: start: 20111007
  5. FUROSEMIDE [Suspect]
     Indication: CARDIAC FAILURE CONGESTIVE
     Dosage: 80 MG QAM AND 40 MG QPM
     Dates: start: 20060101
  6. BLINDED NO TREATMENT RECEIVED [Suspect]
     Indication: CARDIAC FAILURE CHRONIC
     Dosage: CODE NOT BROKEN
     Route: 048
     Dates: end: 20110501
  7. MICARDIS [Concomitant]
     Indication: CARDIAC FAILURE CONGESTIVE
  8. NIASPAN [Concomitant]
     Indication: HYPERCHOLESTEROLAEMIA
     Dosage: 500 MG, QHS
     Dates: start: 20010101
  9. VALSARTAN [Suspect]
     Indication: CARDIAC FAILURE CHRONIC
     Dosage: CODE NOT BROKEN
     Route: 048
     Dates: end: 20110501
  10. CRESTOR [Concomitant]
     Indication: HYPERCHOLESTEROLAEMIA
     Dosage: 20 MG, QD
     Dates: start: 20010101
  11. MICARDIS [Concomitant]
     Indication: HYPERTENSION
     Dosage: UNK

REACTIONS (10)
  - HYPOMAGNESAEMIA [None]
  - CONCOMITANT DISEASE PROGRESSION [None]
  - SHOCK [None]
  - HYPOKALAEMIA [None]
  - CARDIAC FAILURE CHRONIC [None]
  - VENTRICULAR TACHYCARDIA [None]
  - DISEASE PROGRESSION [None]
  - CORONARY ARTERY DISEASE [None]
  - THROMBOCYTOPENIA [None]
  - HEPATIC CIRRHOSIS [None]
